FAERS Safety Report 9395453 (Version 1)
Quarter: 2013Q3

REPORT INFORMATION
  Report Type: Spontaneous
  Country: HK (occurrence: HK)
  Receive Date: 20130711
  Receipt Date: 20130711
  Transmission Date: 20140515
  Serious: Yes (Other)
  Sender: FDA-Public Use
  Company Number: HK-ASTELLAS-2013US007183

PATIENT
  Age: 49 Year
  Sex: Female

DRUGS (1)
  1. ERLOTINIB [Suspect]
     Indication: LUNG CANCER METASTATIC
     Dosage: 150 MG, UID/QD FOR 1 MONTH
     Route: 065

REACTIONS (1)
  - Ulcerative keratitis [Recovering/Resolving]
